FAERS Safety Report 5496390-1 (Version None)
Quarter: 2007Q4

REPORT INFORMATION
  Report Type: 
  Country: None (occurrence: None)
  Receive Date: 20071025
  Receipt Date: 20070403
  Transmission Date: 20080405
  Serious: No
  Sender: FDA-Public Use
  Company Number: A0645763A

PATIENT
  Age: 66 Year
  Sex: Female

DRUGS (9)
  1. ADVAIR DISKUS 100/50 [Suspect]
     Indication: ASTHMA
     Dosage: 1PUFF TWICE PER DAY
     Route: 055
  2. SYNTHROID [Concomitant]
  3. BUPROPION HCL [Concomitant]
  4. LEXAPRO [Concomitant]
  5. HYDROCODONE [Concomitant]
  6. VITAMINS [Concomitant]
  7. ASPIRIN [Concomitant]
  8. FISH OIL [Concomitant]
  9. CALCIUM [Concomitant]

REACTIONS (1)
  - MUSCLE SPASMS [None]
